FAERS Safety Report 9000859 (Version 1)
Quarter: 2013Q1

REPORT INFORMATION
  Report Type: Spontaneous
  Country: US (occurrence: US)
  Receive Date: 20130107
  Receipt Date: 20130107
  Transmission Date: 20140127
  Serious: No
  Sender: FDA-Public Use
  Company Number: US-COVIDIEN/TYCO HEALTHCARE/MALLINCKRODT-T201200284

PATIENT
  Age: 42 Year
  Sex: Female

DRUGS (3)
  1. OPTIRAY [Suspect]
     Indication: COMPUTERISED TOMOGRAM
     Dosage: 100 ML, SINGLE
     Route: 042
     Dates: start: 20120106, end: 20120106
  2. PREDNISONE [Concomitant]
     Indication: PREMEDICATION
     Dosage: 40 MG, 12 H PRIOR TO STUDY
  3. PREDNISONE [Concomitant]
     Dosage: 40 MG, 2 H PRIOR TO STUDY

REACTIONS (2)
  - Throat irritation [Recovered/Resolved]
  - Sneezing [Recovered/Resolved]
